FAERS Safety Report 7412622-4 (Version None)
Quarter: 2011Q2

REPORT INFORMATION
  Report Type: 
  Country: None (occurrence: None)
  Receive Date: 20110413
  Receipt Date: 20110412
  Transmission Date: 20111010
  Serious: Yes (Other)
  Sender: FDA-Public Use
  Company Number: US-JNJFOC-20110310103

PATIENT
  Age: 84 Year
  Sex: Male

DRUGS (4)
  1. SIMVASTATIN [Interacting]
     Indication: HYPERCHOLESTEROLAEMIA
     Route: 065
  2. KETOCONAZOLE [Suspect]
     Indication: PROSTATE CANCER
     Route: 065
  3. LOVASTATIN [Interacting]
     Indication: HYPERCHOLESTEROLAEMIA
     Route: 065
  4. HYDROCORTISONE [Concomitant]
     Route: 065

REACTIONS (4)
  - HEPATITIS [None]
  - DRUG INTERACTION [None]
  - OFF LABEL USE [None]
  - RHABDOMYOLYSIS [None]
